FAERS Safety Report 18303855 (Version 2)
Quarter: 2020Q4

REPORT INFORMATION
  Report Type: Report from Study
  Country: JP (occurrence: JP)
  Receive Date: 20200923
  Receipt Date: 20201001
  Transmission Date: 20210113
  Serious: Yes (Hospitalization, Other)
  Sender: FDA-Public Use
  Company Number: JP-JNJFOC-A-CH2020-202566

PATIENT
  Age: 57 Year
  Sex: Female

DRUGS (25)
  1. CALONAL [Concomitant]
     Active Substance: ACETAMINOPHEN
     Indication: PERIARTHRITIS
     Route: 048
     Dates: start: 20180615
  2. METOCLOPRAMIDE. [Concomitant]
     Active Substance: METOCLOPRAMIDE
     Indication: PROPHYLAXIS
     Route: 042
     Dates: start: 20180912, end: 20180915
  3. HEPARIN NA LOCK [Concomitant]
     Active Substance: HEPARIN SODIUM
     Route: 042
     Dates: start: 20180920, end: 20180926
  4. OPSUMIT [Suspect]
     Active Substance: MACITENTAN
     Indication: PULMONARY ARTERIAL HYPERTENSION
     Dosage: 10 MG, QD
     Route: 048
     Dates: start: 20180517
  5. CEFAZOLIN NA [Suspect]
     Active Substance: CEFAZOLIN SODIUM
     Dosage: 1 G
     Route: 042
     Dates: start: 20190527, end: 20190528
  6. ROPION [Concomitant]
     Active Substance: FLURBIPROFEN AXETIL
     Indication: PAIN
     Route: 042
     Dates: start: 20180927, end: 20180927
  7. ENTERONON-R [Concomitant]
     Active Substance: PROBIOTICS NOS
     Indication: PROPHYLAXIS
     Route: 048
     Dates: start: 20190104, end: 20190117
  8. FENTANYL. [Concomitant]
     Active Substance: FENTANYL
     Indication: ANAESTHESIA PROCEDURE
     Route: 042
     Dates: start: 20180927, end: 20180927
  9. ACELIO [Concomitant]
     Active Substance: ACETAMINOPHEN
     Indication: PAIN
     Route: 042
     Dates: start: 20180928, end: 20180928
  10. CEFAZOLIN NA [Suspect]
     Active Substance: CEFAZOLIN SODIUM
     Indication: DEVICE RELATED INFECTION
     Route: 042
     Dates: start: 20180831, end: 20180928
  11. LASIX [Concomitant]
     Active Substance: FUROSEMIDE
     Indication: RIGHT VENTRICULAR FAILURE
     Dosage: 20 MG, QD
     Route: 048
     Dates: start: 20060303
  12. COCARL [Concomitant]
     Active Substance: ACETAMINOPHEN
     Indication: PERIARTHRITIS
     Dosage: 400MG/AS NEEDED
     Route: 048
     Dates: start: 20180514
  13. ENTERONON-R [Concomitant]
     Active Substance: PROBIOTICS NOS
     Route: 048
     Dates: start: 20190308, end: 20190320
  14. EPOPROSTENOL ACT [Suspect]
     Active Substance: EPOPROSTENOL
     Indication: PULMONARY ARTERIAL HYPERTENSION
     Dosage: 55 NG/KG, PER MIN
     Route: 042
     Dates: start: 200505
  15. LOPEMIN [Concomitant]
     Indication: DIARRHOEA
     Dosage: 1MG/AS NEEDED
     Route: 048
  16. REMIFENTANIL [Concomitant]
     Active Substance: REMIFENTANIL
     Indication: ANAESTHESIA PROCEDURE
     Route: 042
     Dates: start: 20180927, end: 20180927
  17. EPOPROSTENOL ACT [Suspect]
     Active Substance: EPOPROSTENOL
     Dosage: 50 NG/KG
     Route: 042
     Dates: start: 20180524
  18. REVATIO [Suspect]
     Active Substance: SILDENAFIL CITRATE
     Indication: PULMONARY ARTERIAL HYPERTENSION
     Dosage: 20 MG, TID
     Route: 048
     Dates: start: 20080512
  19. MARZULENE ES [Concomitant]
     Indication: CHRONIC GASTRITIS
     Route: 048
     Dates: start: 20080407
  20. COCARL [Concomitant]
     Active Substance: ACETAMINOPHEN
     Route: 048
  21. LAC-B [Concomitant]
     Active Substance: BIFIDOBACTERIUM SPP.
     Indication: DIARRHOEA
     Route: 048
     Dates: start: 20060217
  22. TAKEPRON [Concomitant]
     Active Substance: LANSOPRAZOLE
     Indication: GASTROOESOPHAGEAL REFLUX DISEASE
     Route: 048
     Dates: start: 20090413
  23. ASPARA POTASSIUM [Concomitant]
     Active Substance: POTASSIUM ASPARTATE
     Indication: HYPOKALAEMIA
     Route: 048
     Dates: start: 20110401
  24. LOXOPROFEN NA [Concomitant]
     Active Substance: LOXOPROFEN SODIUM
     Indication: PERIARTHRITIS
     Dosage: 60MG/AS NEEDED
     Route: 048
     Dates: start: 20180817
  25. HEPARIN NA LOCK [Concomitant]
     Active Substance: HEPARIN SODIUM
     Indication: CATHETER MANAGEMENT
     Route: 042
     Dates: start: 20180915, end: 20180916

REACTIONS (10)
  - Diarrhoea [Not Recovered/Not Resolved]
  - Biliary dilatation [Recovered/Resolved]
  - Iron deficiency anaemia [Recovered/Resolved]
  - Pain in jaw [Not Recovered/Not Resolved]
  - Flushing [Not Recovered/Not Resolved]
  - Hot flush [Not Recovered/Not Resolved]
  - Biliary cyst [Recovered/Resolved]
  - Thrombocytopenia [Recovering/Resolving]
  - Device related infection [Recovered/Resolved]
  - Headache [Recovered/Resolved]

NARRATIVE: CASE EVENT DATE: 20180615
